FAERS Safety Report 4423451-8 (Version None)
Quarter: 2004Q3

REPORT INFORMATION
  Report Type: 
  Country: None (occurrence: None)
  Receive Date: 20040806
  Receipt Date: 20040330
  Transmission Date: 20050211
  Serious: Yes (Other)
  Sender: FDA-Public Use
  Company Number: 7731

PATIENT
  Age: 69 Year
  Sex: Female

DRUGS (4)
  1. PAMIDRONATE DISODIUM [Suspect]
     Indication: OSTEOPOROSIS
     Dosage: 60 MG OTH IV
     Route: 042
     Dates: start: 20040311, end: 20040311
  2. ATENOLOL [Concomitant]
  3. ALDACTONE [Concomitant]
  4. SYNTRHOID [Concomitant]

REACTIONS (3)
  - BONE PAIN [None]
  - DIARRHOEA [None]
  - PYREXIA [None]
